FAERS Safety Report 5527936-2 (Version None)
Quarter: 2007Q4

REPORT INFORMATION
  Report Type: 
  Country: None (occurrence: None)
  Receive Date: 20071126
  Receipt Date: 20071126
  Transmission Date: 20080405
  Serious: Yes (Other)
  Sender: FDA-Public Use
  Company Number: None

PATIENT
  Age: 49 Year
  Sex: Female
  Weight: 75.7507 kg

DRUGS (4)
  1. ADVAIR DISKUS 250/50 [Suspect]
     Indication: ASTHMA
     Dosage: 2 X DAY INHAL
     Route: 055
     Dates: start: 20031001, end: 20071119
  2. SYNTHROID [Concomitant]
  3. YAZ BIRTH CONTROL PILLS [Concomitant]
  4. ALBUTEROL [Concomitant]

REACTIONS (7)
  - ANXIETY [None]
  - DYSPNOEA [None]
  - ILL-DEFINED DISORDER [None]
  - MALAISE [None]
  - MENTAL DISORDER [None]
  - ORAL CANDIDIASIS [None]
  - RENAL IMPAIRMENT [None]
